FAERS Safety Report 13114960 (Version 1)
Quarter: 2017Q1

REPORT INFORMATION
  Report Type: Spontaneous
  Country: US (occurrence: US)
  Receive Date: 20170113
  Receipt Date: 20170113
  Transmission Date: 20170428
  Serious: No
  Sender: FDA-Public Use
  Company Number: GXBR2016US002549

PATIENT
  Sex: Female
  Weight: 104.31 kg

DRUGS (2)
  1. VITAMIN D3 [Concomitant]
     Active Substance: CHOLECALCIFEROL
     Indication: BONE DISORDER
     Dosage: 500 MG, QD2SDO
     Route: 048
     Dates: start: 2014
  2. BUPROPION HCL TABLETS [Suspect]
     Active Substance: BUPROPION HYDROCHLORIDE
     Indication: DEPRESSION
     Dosage: 200 MG, BID
     Route: 048

REACTIONS (5)
  - Fatigue [Unknown]
  - Decreased interest [Unknown]
  - Drug ineffective [Unknown]
  - Vitamin D decreased [Unknown]
  - Somnolence [Unknown]
